FAERS Safety Report 8139164-5 (Version None)
Quarter: 2012Q1

REPORT INFORMATION
  Report Type: 
  Country: None (occurrence: None)
  Receive Date: 20120215
  Receipt Date: 20120209
  Transmission Date: 20120608
  Serious: Yes (Hospitalization)
  Sender: FDA-Public Use
  Company Number: US-BAYER-2011-027807

PATIENT
  Age: 19 Year
  Sex: Female
  Weight: 82 kg

DRUGS (9)
  1. NUBAIN [Concomitant]
     Indication: HEADACHE
     Dosage: 10 MG, UNK
     Route: 030
     Dates: start: 20080228
  2. PHENMETRAZINE HYDROCHLORIDE [Concomitant]
     Indication: WEIGHT DECREASED
  3. ARMODAFINIL [Concomitant]
     Dosage: 150 MG, UNK
     Route: 048
     Dates: start: 20080228
  4. PHENERGAN [Concomitant]
     Indication: HEADACHE
     Dosage: 25 MG, UNK
     Route: 030
     Dates: start: 20080228
  5. YASMIN [Suspect]
     Indication: CONTRACEPTION
     Dosage: UNK
     Dates: start: 20020601, end: 20050801
  6. YASMIN [Suspect]
     Indication: MENORRHAGIA
  7. PHENMETRAZINE HYDROCHLORIDE [Concomitant]
     Indication: OBESITY
     Dosage: 37.5 MG, QD
     Route: 048
     Dates: start: 20080228
  8. ERYTHROMYCIN [Concomitant]
     Indication: SINUSITIS
     Dosage: 500 MG, TID
     Route: 048
     Dates: start: 20080228
  9. NEXIUM [Concomitant]
     Dosage: 40 MG, UNK

REACTIONS (20)
  - ULCER [None]
  - HEADACHE [None]
  - CONSTIPATION [None]
  - COLONIC POLYP [None]
  - METRORRHAGIA [None]
  - GASTROOESOPHAGEAL REFLUX DISEASE [None]
  - VOMITING [None]
  - GASTRIC NEOPLASM [None]
  - GASTRITIS [None]
  - NAUSEA [None]
  - WEIGHT DECREASED [None]
  - ILEITIS [None]
  - OESOPHAGITIS [None]
  - CHOLECYSTECTOMY [None]
  - POLYCYSTIC OVARIES [None]
  - EMOTIONAL DISTRESS [None]
  - DECREASED APPETITE [None]
  - HAEMORRHOIDS [None]
  - MENORRHAGIA [None]
  - DIARRHOEA [None]
